FAERS Safety Report 4805941-9 (Version None)
Quarter: 2005Q4

REPORT INFORMATION
  Report Type: 
  Country: None (occurrence: None)
  Receive Date: 20051009
  Receipt Date: 20051005
  Transmission Date: 20060501
  Serious: Yes (Hospitalization)
  Sender: FDA-Public Use
  Company Number: USA0510110132

PATIENT
  Age: 56 Year
  Sex: Female

DRUGS (6)
  1. FORTEO [Suspect]
     Indication: OSTEOPOROSIS
     Dates: start: 20041201
  2. TENORMIN [Concomitant]
  3. SYNTHROID [Concomitant]
  4. EASPRIN (ACETYLSALICYLIC ACID) [Concomitant]
  5. PLAVIX [Concomitant]
  6. IBUPROFEN [Concomitant]

REACTIONS (6)
  - DIPLOPIA [None]
  - FALL [None]
  - FEELING ABNORMAL [None]
  - GAIT DISTURBANCE [None]
  - STRESS [None]
  - TRANSIENT ISCHAEMIC ATTACK [None]
